FAERS Safety Report 9051351 (Version 2)
Quarter: 2013Q1

REPORT INFORMATION
  Report Type: Spontaneous
  Country: US (occurrence: US)
  Receive Date: 20130206
  Receipt Date: 20130304
  Transmission Date: 20140127
  Serious: Yes (Other)
  Sender: FDA-Public Use
  Company Number: US-009507513-1302USA000679

PATIENT
  Age: 53 None
  Sex: Male

DRUGS (3)
  1. SYLATRON [Suspect]
     Dosage: UNK, WEEKLY
     Dates: start: 20121019, end: 20130201
  2. SYLATRON [Suspect]
     Dosage: UNK, WEEKLY
     Dates: start: 20130215
  3. CYMBALTA [Suspect]

REACTIONS (2)
  - Loss of consciousness [Unknown]
  - Convulsion [Unknown]
